FAERS Safety Report 6377369-4 (Version None)
Quarter: 2009Q3

REPORT INFORMATION
  Report Type: 
  Country: None (occurrence: None)
  Receive Date: 20090921
  Receipt Date: 20090917
  Transmission Date: 20100115
  Serious: Yes (Other)
  Sender: FDA-Public Use
  Company Number: 2009SP025682

PATIENT
  Sex: Male

DRUGS (2)
  1. TEMODAL [Suspect]
     Indication: GLIOBLASTOMA MULTIFORME
     Dosage: 75 MG/M2;
     Dates: start: 20090101, end: 20090817
  2. TRILEPTAL [Suspect]
     Indication: EPILEPSY

REACTIONS (4)
  - DRUG INTERACTION [None]
  - NEUTROPENIA [None]
  - SKIN HAEMORRHAGE [None]
  - THROMBOCYTOPENIA [None]
